FAERS Safety Report 6108294-1 (Version None)
Quarter: 2009Q1

REPORT INFORMATION
  Report Type: 
  Country: None (occurrence: None)
  Receive Date: 20090309
  Receipt Date: 20090302
  Transmission Date: 20090719
  Serious: Yes (Hospitalization)
  Sender: FDA-Public Use
  Company Number: US-GENENTECH-278393

PATIENT
  Sex: Female

DRUGS (3)
  1. BEVACIZUMAB [Suspect]
     Indication: BREAST CANCER
     Dosage: 10 MG/KG, DAYS 2+16
     Route: 042
     Dates: start: 20080117, end: 20090122
  2. VORINOSTAT [Suspect]
     Indication: BREAST CANCER
     Dosage: 300 MG, BID
     Route: 048
     Dates: end: 20090123
  3. PACLITAXEL [Suspect]
     Indication: BREAST CANCER
     Dosage: 90 MG/M2, UNK
     Route: 042

REACTIONS (1)
  - NEUROPATHY PERIPHERAL [None]
